FAERS Safety Report 10572281 (Version 2)
Quarter: 2014Q4

REPORT INFORMATION
  Report Type: Report from Study
  Country: US (occurrence: US)
  Receive Date: 20141108
  Receipt Date: 20141108
  Transmission Date: 20150529
  Serious: Yes (Death, Hospitalization, Other)
  Sender: FDA-Public Use
  Company Number: US-CELGENE-USA-2014100629

PATIENT
  Age: 83 Year
  Sex: Male
  Weight: 62 kg

DRUGS (3)
  1. ZOMETA [Concomitant]
     Active Substance: ZOLEDRONIC ACID
     Indication: MYELODYSPLASTIC SYNDROME
     Route: 065
     Dates: start: 20100430
  2. REVLIMID [Suspect]
     Active Substance: LENALIDOMIDE
     Indication: PLASMA CELL MYELOMA
     Dosage: 10 MILLIGRAM
     Route: 048
     Dates: start: 20100422, end: 20130825
  3. PRBC TRANSFUSION [Concomitant]
     Indication: PRODUCT USED FOR UNKNOWN INDICATION
     Route: 065
     Dates: start: 20130506

REACTIONS (7)
  - Anaemia [Recovered/Resolved]
  - Pneumonia [Not Recovered/Not Resolved]
  - Hypokalaemia [Recovered/Resolved]
  - Pancytopenia [Not Recovered/Not Resolved]
  - Plasma cell myeloma [Fatal]
  - Angina pectoris [Recovered/Resolved]
  - Asthenia [Not Recovered/Not Resolved]

NARRATIVE: CASE EVENT DATE: 20120105
